FAERS Safety Report 11411434 (Version 1)
Quarter: 2015Q3

REPORT INFORMATION
  Report Type: Spontaneous
  Country: US (occurrence: US)
  Receive Date: 20150821
  Receipt Date: 20150821
  Transmission Date: 20151125
  Serious: No
  Sender: FDA-Public Use
  Company Number: US-ELI_LILLY_AND_COMPANY-US201007003329

PATIENT
  Age: 67 Year
  Sex: Female

DRUGS (4)
  1. HUMULIN 70/30 [Suspect]
     Active Substance: INSULIN HUMAN
     Indication: DIABETES MELLITUS
     Dosage: 84 U, 2/D
  2. NEURONTIN [Concomitant]
     Active Substance: GABAPENTIN
     Indication: NEUROPATHY PERIPHERAL
  3. HUMULIN 70/30 [Suspect]
     Active Substance: INSULIN HUMAN
     Dosage: 84 U, 2/D
  4. NOVOLIN [Concomitant]
     Active Substance: INSULIN HUMAN

REACTIONS (7)
  - Blood glucose increased [Unknown]
  - Drug ineffective [Unknown]
  - Wrong drug administered [Unknown]
  - Drug dispensing error [Unknown]
  - Cardiac disorder [Not Recovered/Not Resolved]
  - Poor quality drug administered [Unknown]
  - Weight increased [Unknown]

NARRATIVE: CASE EVENT DATE: 20100711
